FAERS Safety Report 8059427-1 (Version None)
Quarter: 2012Q1

REPORT INFORMATION
  Report Type: 
  Country: None (occurrence: None)
  Receive Date: 20120113
  Receipt Date: 20120105
  Transmission Date: 20120608
  Serious: Yes (Other)
  Sender: FDA-Public Use
  Company Number: 2012SP001204

PATIENT

DRUGS (1)
  1. PROVENTIL-HFA [Suspect]
     Indication: ASTHMA

REACTIONS (1)
  - GRAND MAL CONVULSION [None]
